FAERS Safety Report 16684588 (Version 1)
Quarter: 2019Q3

REPORT INFORMATION
  Report Type: Spontaneous
  Country: IT (occurrence: IT)
  Receive Date: 20190808
  Receipt Date: 20190808
  Transmission Date: 20191004
  Serious: Yes (Other)
  Sender: FDA-Public Use
  Company Number: IT-EISAI MEDICAL RESEARCH-EC-2019-060132

PATIENT
  Age: 24 Year
  Sex: Male

DRUGS (3)
  1. VIMPAT [Concomitant]
     Active Substance: LACOSAMIDE
     Indication: ENCEPHALOPATHY
  2. FYCOMPA [Suspect]
     Active Substance: PERAMPANEL
     Indication: ENCEPHALOPATHY
     Route: 048
     Dates: start: 20161108, end: 20170105
  3. FRISIUM [Concomitant]
     Active Substance: CLOBAZAM
     Indication: ENCEPHALOPATHY

REACTIONS (2)
  - Aggression [Recovered/Resolved]
  - Drug ineffective [Recovered/Resolved]

NARRATIVE: CASE EVENT DATE: 20161220
